FAERS Safety Report 14675796 (Version 3)
Quarter: 2018Q2

REPORT INFORMATION
  Report Type: Report from Study
  Country: IT (occurrence: IT)
  Receive Date: 20180323
  Receipt Date: 20180412
  Transmission Date: 20180711
  Serious: Yes (Hospitalization)
  Sender: FDA-Public Use
  Company Number: IT-PFIZER INC-2018119352

PATIENT
  Age: 57 Year
  Sex: Female

DRUGS (1)
  1. ALPRAZOLAM. [Suspect]
     Active Substance: ALPRAZOLAM
     Dosage: UNK (TOOK HALF A BOTTLE OF ALPRAZOLAM INSTEAD OF THE CORRECT PRESCRIBED THERAPY)
     Route: 048
     Dates: start: 20171218, end: 20171218

REACTIONS (4)
  - Confusional state [Recovered/Resolved]
  - Vertigo [Recovered/Resolved]
  - Medication error [Recovered/Resolved]
  - Extra dose administered [Recovered/Resolved]

NARRATIVE: CASE EVENT DATE: 20171218
